FAERS Safety Report 7277865-1 (Version None)
Quarter: 2011Q1

REPORT INFORMATION
  Report Type: 
  Country: None (occurrence: None)
  Receive Date: 20110207
  Receipt Date: 20101207
  Transmission Date: 20110831
  Serious: Yes (Hospitalization)
  Sender: FDA-Public Use
  Company Number: JP-GILEAD-2010-0031354

PATIENT
  Sex: Male

DRUGS (4)
  1. MERCAZOLE [Concomitant]
     Dates: start: 20090805, end: 20091006
  2. MERCAZOLE [Concomitant]
     Dates: start: 20091007
  3. TRUVADA [Suspect]
     Indication: HIV INFECTION
     Route: 048
     Dates: start: 20060414
  4. STOCRIN [Suspect]
     Indication: HIV INFECTION
     Route: 048
     Dates: start: 20060414

REACTIONS (2)
  - HYPERTHYROIDISM [None]
  - ATRIAL FLUTTER [None]
